FAERS Safety Report 9686677 (Version 3)
Quarter: 2013Q4

REPORT INFORMATION
  Report Type: Spontaneous
  Country: US (occurrence: US)
  Receive Date: 20131113
  Receipt Date: 20131129
  Transmission Date: 20140711
  Serious: No
  Sender: FDA-Public Use
  Company Number: US-PFIZER INC-2013320942

PATIENT
  Age: 61 Year
  Sex: Female
  Weight: 90 kg

DRUGS (3)
  1. LYRICA [Suspect]
     Indication: BACK PAIN
     Dosage: UNK
     Dates: end: 2009
  2. CRESTOR [Concomitant]
     Indication: BLOOD CHOLESTEROL INCREASED
     Dosage: 10 MG, DAILY
  3. METFORMIN [Concomitant]
     Indication: DIABETES MELLITUS
     Dosage: 1000 MG, 2X/DAY

REACTIONS (2)
  - Fluid retention [Unknown]
  - Drug tolerance [Unknown]
